FAERS Safety Report 8309893-9 (Version None)
Quarter: 2012Q2

REPORT INFORMATION
  Report Type: 
  Country: None (occurrence: None)
  Receive Date: 20120425
  Receipt Date: 20120417
  Transmission Date: 20120825
  Serious: Yes (Other)
  Sender: FDA-Public Use
  Company Number: ES-NOVOPROD-348767

PATIENT
  Sex: Male

DRUGS (3)
  1. ACENOCOUMAROL [Concomitant]
     Dosage: 3 MG THREE TIMES A WEEK
  2. VICTOZA [Suspect]
     Indication: TYPE 2 DIABETES MELLITUS
     Dosage: UNK
     Route: 065
     Dates: start: 20120302, end: 20120328
  3. COROPRES                           /00984501/ [Concomitant]
     Dosage: UNK

REACTIONS (1)
  - INTERNATIONAL NORMALISED RATIO DECREASED [None]
